FAERS Safety Report 23078756 (Version 1)
Quarter: 2023Q4

REPORT INFORMATION
  Report Type: Report from Study
  Country: TW (occurrence: TW)
  Receive Date: 20231018
  Receipt Date: 20231018
  Transmission Date: 20240110
  Serious: Yes (Hospitalization)
  Sender: FDA-Public Use
  Company Number: TW-PFIZER INC-202201136557

PATIENT
  Age: 64 Year
  Sex: Female
  Weight: 54 kg

DRUGS (5)
  1. ELRANATAMAB [Suspect]
     Active Substance: ELRANATAMAB
     Indication: Plasma cell myeloma
     Dosage: 44 MG, WEEKLY
     Route: 058
     Dates: start: 20220427, end: 20220629
  2. ELRANATAMAB [Suspect]
     Active Substance: ELRANATAMAB
     Dosage: 32 MG, WEEKLY
     Route: 058
     Dates: start: 20220713, end: 20220727
  3. ELRANATAMAB [Suspect]
     Active Substance: ELRANATAMAB
     Dosage: 32 MG, EVERY 2 WEEKS
     Route: 058
     Dates: start: 20220817, end: 20220831
  4. ALL RIGHT CALCIUM [Concomitant]
     Indication: Muscle spasms
     Dosage: 6 ML, 1X/DAY, SUSPENSION
     Route: 048
     Dates: start: 20220817, end: 20220914
  5. BACLOFEN [Concomitant]
     Active Substance: BACLOFEN
     Indication: Muscle spasms
     Dosage: 5 MG, AS NEEDED
     Route: 048
     Dates: start: 20220817, end: 20220819

REACTIONS (3)
  - Pneumonia [Recovered/Resolved]
  - Fungaemia [Recovered/Resolved]
  - Cytomegalovirus infection reactivation [Recovered/Resolved]

NARRATIVE: CASE EVENT DATE: 20220906
